FAERS Safety Report 12634105 (Version 1)
Quarter: 2016Q3

REPORT INFORMATION
  Report Type: Spontaneous
  Country: US (occurrence: US)
  Receive Date: 20160809
  Receipt Date: 20160809
  Transmission Date: 20161109
  Serious: No
  Sender: FDA-Public Use
  Company Number: US-GLAXOSMITHKLINE-US2016114430

PATIENT
  Age: 10 Year
  Sex: Male

DRUGS (2)
  1. PREVACID 24 HR [Suspect]
     Active Substance: LANSOPRAZOLE
     Indication: GASTROOESOPHAGEAL REFLUX DISEASE
     Dosage: UNK UNK, BID, 40 PILLS A WEEK
     Route: 048
  2. BICARBONATE [Concomitant]
     Active Substance: BICARBONATE ION
     Indication: PRODUCT USED FOR UNKNOWN INDICATION
     Dosage: UNK
     Route: 048

REACTIONS (5)
  - Overdose [Unknown]
  - Drug administered to patient of inappropriate age [Unknown]
  - Incorrect drug administration duration [Unknown]
  - Inappropriate schedule of drug administration [Unknown]
  - Wrong technique in product usage process [Unknown]
